FAERS Safety Report 9840816 (Version 1)
Quarter: 2013Q4

REPORT INFORMATION
  Report Type: Spontaneous
  Country: US (occurrence: None)
  Receive Date: 20131211
  Receipt Date: 20131211
  Transmission Date: 20140711
  Serious: Yes (Hospitalization)
  Sender: FDA-Public Use
  Company Number: SPV1-2012-01113

PATIENT
  Age: 6 Year
  Sex: Male

DRUGS (1)
  1. VYVANSE (LISDEXAMFETAMINE DIMESYLATE) CAPSULE? [Suspect]
     Indication: PRODUCT USED FOR UNKNOWN INDICATION
     Dosage: 20 MG, 1X/DAY, QD, ORAL
     Route: 048

REACTIONS (5)
  - Aggression [None]
  - Agitation [None]
  - Insomnia [None]
  - Hallucination, visual [None]
  - Trichotillomania [None]
